FAERS Safety Report 24992747 (Version 2)
Quarter: 2025Q3

REPORT INFORMATION
  Report Type: Spontaneous
  Country: EU (occurrence: EU)
  Receive Date: 20250221
  Receipt Date: 20250810
  Transmission Date: 20251021
  Serious: No
  Sender: ALEXION PHARMACEUTICALS
  Company Number: EU-TEVA-2020-DE-1169726

PATIENT
  Age: 50 Year
  Sex: Female

DRUGS (2)
  1. ESOMEPRAZOLE [Suspect]
     Active Substance: ESOMEPRAZOLE
     Dates: start: 2016, end: 201911
  2. ESOMEPRAZOLE [Suspect]
     Active Substance: ESOMEPRAZOLE

REACTIONS (1)
  - Tinnitus [Not Recovered/Not Resolved]
